FAERS Safety Report 8957180 (Version 5)
Quarter: 2016Q1

REPORT INFORMATION
  Report Type: Report from Study
  Country: CA (occurrence: CA)
  Receive Date: 20121210
  Receipt Date: 20160127
  Transmission Date: 20160526
  Serious: Yes (Other)
  Sender: FDA-Public Use
  Company Number: CA-ROCHE-GNE226859

PATIENT
  Age: 45 Year
  Sex: Female
  Weight: 62.06 kg

DRUGS (11)
  1. SYMBICORT [Concomitant]
     Active Substance: BUDESONIDE\FORMOTEROL FUMARATE DIHYDRATE
     Indication: PRODUCT USED FOR UNKNOWN INDICATION
  2. CARBOCAL D [Concomitant]
     Active Substance: CALCIUM\VITAMIN D
  3. OMALIZUMAB [Suspect]
     Active Substance: OMALIZUMAB
     Indication: ASTHMA
     Route: 058
     Dates: start: 200509, end: 20051129
  4. OMALIZUMAB [Suspect]
     Active Substance: OMALIZUMAB
     Route: 058
     Dates: start: 20090407
  5. PREDNISONE. [Concomitant]
     Active Substance: PREDNISONE
     Indication: PRODUCT USED FOR UNKNOWN INDICATION
  6. OMALIZUMAB [Suspect]
     Active Substance: OMALIZUMAB
     Route: 058
     Dates: start: 20111011
  7. OMALIZUMAB [Suspect]
     Active Substance: OMALIZUMAB
     Route: 058
     Dates: start: 201212
  8. OMALIZUMAB [Suspect]
     Active Substance: OMALIZUMAB
     Dosage: 225 MG, Q2W
     Route: 058
     Dates: end: 20060619
  9. OMALIZUMAB [Suspect]
     Active Substance: OMALIZUMAB
     Route: 058
     Dates: start: 20130307
  10. FOSAMAX [Concomitant]
     Active Substance: ALENDRONATE SODIUM
     Indication: PRODUCT USED FOR UNKNOWN INDICATION
  11. OMALIZUMAB [Suspect]
     Active Substance: OMALIZUMAB
     Dosage: 225 MG, Q2W
     Route: 058
     Dates: end: 20110201

REACTIONS (11)
  - Eczema [Recovering/Resolving]
  - Scratch [Unknown]
  - Incorrect dose administered [Unknown]
  - Traumatic haemorrhage [Unknown]
  - Pruritus [Unknown]
  - Sputum discoloured [Unknown]
  - Herpes zoster [Unknown]
  - Pain in extremity [Not Recovered/Not Resolved]
  - Erythema [Unknown]
  - Rash [Not Recovered/Not Resolved]
  - Productive cough [Unknown]

NARRATIVE: CASE EVENT DATE: 200510
